APPROVED DRUG PRODUCT: ESZOPICLONE
Active Ingredient: ESZOPICLONE
Strength: 3MG
Dosage Form/Route: TABLET;ORAL
Application: A091103 | Product #003 | TE Code: AB
Applicant: SUN PHARMACEUTICAL INDUSTRIES LTD
Approved: Apr 3, 2013 | RLD: No | RS: No | Type: RX